FAERS Safety Report 8891643 (Version 1)
Quarter: 2012Q4

REPORT INFORMATION
  Report Type: 
  Country: GB (occurrence: GB)
  Receive Date: 20121107
  Receipt Date: 20121107
  Transmission Date: 20130627
  Serious: Yes (Other)
  Sender: FDA-Public Use
  Company Number: GB-PFIZER INC-2012277004

PATIENT
  Age: 62 Year
  Sex: Male
  Weight: 80 kg

DRUGS (6)
  1. CHAMPIX [Suspect]
     Dosage: UNK
     Dates: start: 20120926
  2. RAMIPRIL [Concomitant]
     Dosage: UNK
     Dates: start: 20120620
  3. AMLODIPINE [Concomitant]
     Dosage: UNK
     Dates: start: 20120620, end: 20120815
  4. FLUOXETINE [Concomitant]
     Dosage: UNK
     Dates: start: 20120921, end: 20121021
  5. SERTRALINE [Concomitant]
     Dosage: UNK
     Dates: start: 20121018
  6. NOVORAPID [Concomitant]
     Dosage: UNK
     Dates: start: 20121018

REACTIONS (1)
  - Hypertensive crisis [Unknown]
